FAERS Safety Report 7240104-1 (Version None)
Quarter: 2011Q1

REPORT INFORMATION
  Report Type: 
  Country: None (occurrence: None)
  Receive Date: 20110124
  Receipt Date: 20110117
  Transmission Date: 20110831
  Serious: Yes (Other)
  Sender: FDA-Public Use
  Company Number: GB-AMGEN-GBRCT2011003608

PATIENT
  Age: 13 Year
  Sex: Female
  Weight: 40.8 kg

DRUGS (1)
  1. ETANERCEPT [Suspect]
     Indication: PRODUCT USED FOR UNKNOWN INDICATION
     Dosage: 15 MG, 2 TIMES/WK
     Route: 058
     Dates: start: 20090901

REACTIONS (1)
  - HEADACHE [None]
